FAERS Safety Report 17300698 (Version 2)
Quarter: 2021Q1

REPORT INFORMATION
  Report Type: Spontaneous
  Country: US (occurrence: US)
  Receive Date: 20200122
  Receipt Date: 20210125
  Transmission Date: 20210419
  Serious: No
  Sender: FDA-Public Use
  Company Number: US-ALLERGAN-1953651US

PATIENT
  Age: 70 Year
  Sex: Female

DRUGS (2)
  1. RESTASIS [Suspect]
     Active Substance: CYCLOSPORINE
     Indication: DRY EYE
     Dosage: 2 GTT, BID
     Route: 047
  2. PROBIOTIC [Concomitant]
     Active Substance: PROBIOTICS NOS
     Indication: MALNUTRITION
     Dosage: UNK, QD
     Route: 048

REACTIONS (2)
  - Product storage error [Unknown]
  - Multiple use of single-use product [Unknown]
